FAERS Safety Report 16609082 (Version 1)
Quarter: 2019Q3

REPORT INFORMATION
  Report Type: Spontaneous
  Country: US (occurrence: US)
  Receive Date: 20190607
  Receipt Date: 20190607
  Transmission Date: 20191004
  Serious: Yes (Death)
  Sender: FDA-Public Use
  Company Number: None

PATIENT
  Age: 63 Year
  Sex: Male

DRUGS (10)
  1. AMLODIPINE TAB [Concomitant]
  2. PANTOPRAZOLE TAB [Concomitant]
  3. LISINOPRIL TAB [Concomitant]
  4. ESBRIET [Suspect]
     Active Substance: PIRFENIDONE
     Indication: IDIOPATHIC PULMONARY FIBROSIS
     Route: 048
     Dates: start: 20180414
  5. CLIPIZIDE ER TAB [Concomitant]
  6. CHLORTHALID TAB [Concomitant]
  7. HYD POL/CPM SUS [Concomitant]
  8. CONTOUR TES NEXT [Concomitant]
  9. METFORMIN TAB [Concomitant]
  10. ATORVASTATIN TAB [Concomitant]
     Active Substance: ATORVASTATIN

REACTIONS (1)
  - Death [None]

NARRATIVE: CASE EVENT DATE: 20190526
